FAERS Safety Report 14436707 (Version 1)
Quarter: 2018Q1

REPORT INFORMATION
  Report Type: Spontaneous
  Country: US (occurrence: US)
  Receive Date: 20180125
  Receipt Date: 20180125
  Transmission Date: 20180509
  Serious: No
  Sender: FDA-Public Use
  Company Number: US-UNITED THERAPEUTICS-UNT-2017-011028

PATIENT
  Sex: Female
  Weight: 67.12 kg

DRUGS (3)
  1. TYVASO [Suspect]
     Active Substance: TREPROSTINIL
     Indication: PULMONARY HYPERTENSION
     Dosage: 72 ?G, QID
     Dates: start: 20170202
  2. TYVASO [Suspect]
     Active Substance: TREPROSTINIL
     Dosage: 72 ?G, TID
  3. TYVASO [Suspect]
     Active Substance: TREPROSTINIL
     Dosage: 18-72 MICROGRAMS,QID

REACTIONS (3)
  - Off label use [Unknown]
  - Headache [Unknown]
  - Arthralgia [Unknown]

NARRATIVE: CASE EVENT DATE: 2017
